FAERS Safety Report 16942807 (Version 1)
Quarter: 2019Q4

REPORT INFORMATION
  Report Type: Spontaneous
  Country: US (occurrence: US)
  Receive Date: 20191021
  Receipt Date: 20191021
  Transmission Date: 20200122
  Serious: Yes (Other)
  Sender: FDA-Public Use
  Company Number: US-PURDUE-USA-2019-0148724

PATIENT
  Sex: Male

DRUGS (8)
  1. OXYCODONE/ ACETAMINOPHEN TABLETS [Suspect]
     Active Substance: ACETAMINOPHEN\OXYCODONE HYDROCHLORIDE
     Dosage: 10/325 MG, 4 TIMES DAILY
     Route: 048
     Dates: end: 201501
  2. BUTRANS [Suspect]
     Active Substance: BUPRENORPHINE
     Indication: BACK PAIN
     Dosage: 10 MCG/HR, WEEKLY
     Route: 062
     Dates: start: 201406, end: 201410
  3. FENTANYL. [Suspect]
     Active Substance: FENTANYL
     Dosage: 50 MCG, UNK
     Route: 062
     Dates: start: 2015, end: 2016
  4. OXYCODONE/ ACETAMINOPHEN TABLETS [Suspect]
     Active Substance: ACETAMINOPHEN\OXYCODONE HYDROCHLORIDE
     Indication: BACK PAIN
     Dosage: 5/325 MG, DAILY
     Route: 048
     Dates: start: 2012
  5. OXYCODONE/ ACETAMINOPHEN TABLETS [Suspect]
     Active Substance: ACETAMINOPHEN\OXYCODONE HYDROCHLORIDE
     Dosage: 10/325 MG, DAILY
     Route: 048
     Dates: start: 201603, end: 2017
  6. OXYCONTIN [Suspect]
     Active Substance: OXYCODONE HYDROCHLORIDE
     Indication: BACK PAIN
     Dosage: 10 MG, 2 TABETS DAILY
     Route: 048
     Dates: start: 2012, end: 201501
  7. FENTANYL. [Suspect]
     Active Substance: FENTANYL
     Indication: BACK PAIN
     Dosage: 25 MCG, UNK
     Route: 062
     Dates: start: 2013, end: 2016
  8. BUTRANS [Suspect]
     Active Substance: BUPRENORPHINE
     Dosage: 25 MCG/HR, WEEKLY
     Route: 062
     Dates: start: 201410

REACTIONS (8)
  - Gastrointestinal erosion [Unknown]
  - Withdrawal syndrome [Unknown]
  - Peptic ulcer [Unknown]
  - Cardiac disorder [Unknown]
  - Cerebral atrophy [Unknown]
  - Hallucination [Unknown]
  - Tachycardia [Unknown]
  - Bedridden [Unknown]

NARRATIVE: CASE EVENT DATE: 2015
